FAERS Safety Report 14575739 (Version 2)
Quarter: 2018Q1

REPORT INFORMATION
  Report Type: Spontaneous
  Country: US (occurrence: US)
  Receive Date: 20180227
  Receipt Date: 20180320
  Transmission Date: 20180509
  Serious: No
  Sender: FDA-Public Use
  Company Number: US-009507513-1802USA008440

PATIENT
  Sex: Female
  Weight: 112.2 kg

DRUGS (2)
  1. NEXPLANON [Suspect]
     Active Substance: ETONOGESTREL
     Indication: CONTRACEPTION
     Dosage: 1 DF, EVERY THREE YEAR
     Route: 059
     Dates: start: 20161102, end: 20180214
  2. NEXPLANON [Suspect]
     Active Substance: ETONOGESTREL
     Dosage: 1 DF, EVERY THREE YEAR
     Route: 059
     Dates: start: 201802

REACTIONS (2)
  - No adverse event [Unknown]
  - Device breakage [Recovered/Resolved]
